FAERS Safety Report 6773003-X (Version None)
Quarter: 2010Q2

REPORT INFORMATION
  Report Type: 
  Country: None (occurrence: None)
  Receive Date: 20100616
  Receipt Date: 20100607
  Transmission Date: 20101027
  Serious: Yes (Other)
  Sender: FDA-Public Use
  Company Number: US-PFIZER INC-2010071821

PATIENT
  Sex: Female
  Weight: 65.76 kg

DRUGS (5)
  1. FLAGYL [Suspect]
     Indication: LYME DISEASE
     Dosage: 500 MG, 2X/DAY
     Route: 048
     Dates: start: 20100529, end: 20100530
  2. FLAGYL [Suspect]
     Dosage: 500 MG, 2X/DAY
     Route: 048
     Dates: start: 20100602, end: 20100605
  3. ZITHROMAX [Suspect]
     Indication: LYME DISEASE
     Dosage: 250 MG, 2X/DAY
     Route: 048
     Dates: start: 20100530, end: 20100530
  4. ZITHROMAX [Suspect]
     Dosage: 250 MG, 2X/DAY
     Route: 048
     Dates: start: 20100604, end: 20100605
  5. BIAXIN [Suspect]
     Indication: LYME DISEASE
     Dosage: 500 MG, 2X/DAY
     Route: 048
     Dates: start: 20100602, end: 20100603

REACTIONS (5)
  - BURNING SENSATION [None]
  - MUSCLE SPASMS [None]
  - PARAESTHESIA [None]
  - TINNITUS [None]
  - TONGUE DISCOLOURATION [None]
